FAERS Safety Report 25302699 (Version 1)
Quarter: 2025Q2

REPORT INFORMATION
  Report Type: Spontaneous
  Country: CO (occurrence: CO)
  Receive Date: 20250512
  Receipt Date: 20250512
  Transmission Date: 20250716
  Serious: Yes (Hospitalization)
  Sender: BIOMARIN
  Company Number: CO-BIOMARINAP-CO-2025-165631

PATIENT

DRUGS (2)
  1. VIMIZIM [Suspect]
     Active Substance: ELOSULFASE ALFA
     Indication: Mucopolysaccharidosis IV
     Dosage: 45 MILLIGRAM, QW
     Route: 042
     Dates: start: 20151106
  2. FUROSEMIDE [Concomitant]
     Active Substance: FUROSEMIDE
     Indication: Product used for unknown indication
     Dosage: 40 MILLIGRAM, QD

REACTIONS (6)
  - Cholelithiasis [Not Recovered/Not Resolved]
  - Abdominal distension [Unknown]
  - Flatulence [Unknown]
  - Abdominal pain [Not Recovered/Not Resolved]
  - Vomiting [Unknown]
  - Fatigue [Unknown]

NARRATIVE: CASE EVENT DATE: 20250426
